FAERS Safety Report 13292096 (Version 1)
Quarter: 2017Q1

REPORT INFORMATION
  Report Type: Spontaneous
  Country: US (occurrence: US)
  Receive Date: 20170303
  Receipt Date: 20170303
  Transmission Date: 20170428
  Serious: No
  Sender: FDA-Public Use
  Company Number: US-BAYER-2017-041612

PATIENT
  Sex: Male
  Weight: 88 kg

DRUGS (1)
  1. CLARITIN-D 24 HOUR [Suspect]
     Active Substance: LORATADINE\PSEUDOEPHEDRINE SULFATE
     Indication: UPPER-AIRWAY COUGH SYNDROME
     Dosage: 1 DF, QD
     Route: 048
     Dates: start: 20170301, end: 20170301

REACTIONS (2)
  - Product use issue [Unknown]
  - Dysuria [Recovered/Resolved]

NARRATIVE: CASE EVENT DATE: 20170301
